FAERS Safety Report 9475020 (Version 6)
Quarter: 2015Q1

REPORT INFORMATION
  Report Type: Spontaneous
  Country: CA (occurrence: CA)
  Receive Date: 20130824
  Receipt Date: 20150216
  Transmission Date: 20150721
  Serious: Yes (Other)
  Sender: FDA-Public Use
  Company Number: CA-ROCHE-1246429

PATIENT
  Age: 37 Year
  Sex: Female

DRUGS (11)
  1. ADVAIR HFA [Concomitant]
     Active Substance: FLUTICASONE PROPIONATE\SALMETEROL XINAFOATE
  2. SINGULAIR [Concomitant]
     Active Substance: MONTELUKAST SODIUM
  3. METOCLOPRAMIDE. [Concomitant]
     Active Substance: METOCLOPRAMIDE
  4. XOLAIR [Suspect]
     Active Substance: OMALIZUMAB
     Indication: ASTHMA
     Route: 058
     Dates: start: 20130628
  5. XOLAIR [Suspect]
     Active Substance: OMALIZUMAB
     Route: 065
     Dates: end: 20130911
  6. XOLAIR [Suspect]
     Active Substance: OMALIZUMAB
     Route: 065
     Dates: start: 20130927
  7. NORTRIPTYLINE [Concomitant]
     Active Substance: NORTRIPTYLINE
  8. FLOVENT [Concomitant]
     Active Substance: FLUTICASONE PROPIONATE
  9. CETIRIZINE [Concomitant]
     Active Substance: CETIRIZINE HYDROCHLORIDE
  10. DILTIAZEM [Concomitant]
     Active Substance: DILTIAZEM
  11. XOLAIR [Suspect]
     Active Substance: OMALIZUMAB
     Route: 065
     Dates: end: 20130820

REACTIONS (10)
  - Insomnia [Unknown]
  - Injection site reaction [Unknown]
  - Chronic throat clearing [Unknown]
  - Hot flush [Unknown]
  - Headache [Recovered/Resolved]
  - Dyspnoea [Unknown]
  - Heart rate increased [Unknown]
  - Asthma [Unknown]
  - Dizziness [Recovered/Resolved]
  - Sensitivity to weather change [Unknown]

NARRATIVE: CASE EVENT DATE: 20130628
